FAERS Safety Report 4898154-6 (Version None)
Quarter: 2006Q1

REPORT INFORMATION
  Report Type: 
  Country: None (occurrence: None)
  Receive Date: 20060106
  Receipt Date: 20051102
  Transmission Date: 20060701
  Serious: Yes (Other)
  Sender: FDA-Public Use
  Company Number: HQWYE439707NOV05

PATIENT
  Age: 52 Year
  Sex: Female
  Weight: 52.21 kg

DRUGS (1)
  1. PRIMATENE MIST [Suspect]
     Indication: ASTHMA
     Dosage: ONE INHALATION TWICE DAILY TO THREE TIMES A DAY, INHALATION
     Route: 055
     Dates: start: 20050101

REACTIONS (2)
  - STOMACH DISCOMFORT [None]
  - THROAT IRRITATION [None]
